FAERS Safety Report 9646291 (Version 2)
Quarter: 2013Q4

REPORT INFORMATION
  Report Type: Report from Study
  Country: CA (occurrence: CA)
  Receive Date: 20131025
  Receipt Date: 20131025
  Transmission Date: 20140711
  Serious: Yes (Life-Threatening, Hospitalization)
  Sender: FDA-Public Use
  Company Number: CA-TEVA-430727USA

PATIENT
  Age: 70 Year
  Sex: Male
  Weight: 127 kg

DRUGS (7)
  1. CUSTIRSEN [Suspect]
     Indication: PROSTATE CANCER
  2. CABAZITAXEL [Suspect]
     Indication: PROSTATE CANCER
     Dosage: Q3W
     Route: 042
     Dates: start: 20130624, end: 20130624
  3. CABAZITAXEL [Suspect]
     Dosage: .9524 MG/M2 DAILY;
     Route: 042
     Dates: start: 20130722, end: 20130812
  4. CARVEDILOL [Suspect]
     Indication: HYPERTENSION
     Dosage: 20 MILLIGRAM DAILY;
     Route: 048
     Dates: start: 201307
  5. COVERSYL [Concomitant]
     Indication: HYPERTENSION
     Dosage: 2 MILLIGRAM DAILY;
     Route: 048
     Dates: start: 2012, end: 20130903
  6. AMIODARONE [Concomitant]
     Indication: ATRIAL FIBRILLATION
     Dosage: 5 X PER WEEK
     Route: 048
     Dates: start: 200903
  7. FUROSEMIDE [Concomitant]
     Dosage: 20 MILLIGRAM DAILY;
     Route: 048
     Dates: start: 20130913

REACTIONS (3)
  - Syncope [Recovered/Resolved]
  - Pulmonary embolism [Not Recovered/Not Resolved]
  - Deep vein thrombosis [Not Recovered/Not Resolved]
